FAERS Safety Report 19239824 (Version 3)
Quarter: 2021Q2

REPORT INFORMATION
  Report Type: Spontaneous
  Country: CH (occurrence: CH)
  Receive Date: 20210511
  Receipt Date: 20210521
  Transmission Date: 20210717
  Serious: Yes (Hospitalization, Other)
  Sender: FDA-Public Use
  Company Number: CH-GILEAD-2021-0529814

PATIENT
  Age: 37 Year
  Sex: Male
  Weight: 99 kg

DRUGS (17)
  1. DESCOVY [Suspect]
     Active Substance: EMTRICITABINE\TENOFOVIR ALAFENAMIDE FUMARATE
     Indication: HIV INFECTION
     Dosage: 200/10 MG, QD
     Route: 065
     Dates: start: 20171207, end: 20180105
  2. ASPIRIN [ACETYLSALICYLIC ACID] [Concomitant]
     Active Substance: ASPIRIN
  3. PICTARVY [Concomitant]
  4. ZOLPIDEM [Concomitant]
     Active Substance: ZOLPIDEM TARTRATE
     Indication: SLEEP DISORDER
     Dosage: 1 DOSAGE FORM, QD
     Route: 048
     Dates: end: 20210427
  5. BURGERSTEIN TOP VITAL [Concomitant]
  6. BIKTARVY [Suspect]
     Active Substance: BICTEGRAVIR SODIUM\EMTRICITABINE\TENOFOVIR ALAFENAMIDE FUMARATE
     Indication: HIV INFECTION
     Dosage: 1 DOSAGE FORM, QD
     Route: 048
     Dates: start: 20200717, end: 20210427
  7. CAVERJECT [Concomitant]
     Active Substance: ALPROSTADIL
  8. SPIRALGIN [Concomitant]
     Active Substance: MEFENAMIC ACID
  9. VITAMIN D3 [Concomitant]
     Active Substance: CHOLECALCIFEROL
  10. IBUPROFEN. [Concomitant]
     Active Substance: IBUPROFEN
  11. TESTOSTERONE ENANTATE [Suspect]
     Active Substance: TESTOSTERONE
     Indication: PRODUCT USED FOR UNKNOWN INDICATION
     Dosage: UNK
     Route: 065
     Dates: end: 20210427
  12. SPIRICORT [Concomitant]
     Active Substance: PREDNISOLONE
  13. 3TC [Concomitant]
     Active Substance: LAMIVUDINE
  14. DESCOVY [Suspect]
     Active Substance: EMTRICITABINE\TENOFOVIR ALAFENAMIDE FUMARATE
     Dosage: 200/25 MG, QD
     Route: 065
     Dates: start: 20180106, end: 20200716
  15. TIVICAY [Concomitant]
     Active Substance: DOLUTEGRAVIR SODIUM
     Indication: HIV INFECTION
     Dosage: UNK
     Dates: start: 20170712, end: 20200716
  16. BILOL [Concomitant]
     Active Substance: BISOPROLOL
  17. NSAR [Concomitant]
     Active Substance: UNSPECIFIED INGREDIENT

REACTIONS (4)
  - Tubulointerstitial nephritis [Recovering/Resolving]
  - Crystal nephropathy [Recovering/Resolving]
  - Blood creatine phosphokinase increased [Unknown]
  - Liver disorder [Unknown]

NARRATIVE: CASE EVENT DATE: 20210401
